FAERS Safety Report 5528008-3 (Version None)
Quarter: 2007Q4

REPORT INFORMATION
  Report Type: 
  Country: None (occurrence: None)
  Receive Date: 20071123
  Receipt Date: 20071113
  Transmission Date: 20080405
  Serious: Yes (Hospitalization)
  Sender: FDA-Public Use
  Company Number: 2007335216

PATIENT
  Sex: Female
  Weight: 54.4316 kg

DRUGS (1)
  1. NEOSPORIN [Suspect]
     Indication: WOUND
     Dosage: TOPICAL
     Route: 061
     Dates: start: 20071005, end: 20071007

REACTIONS (1)
  - STAPHYLOCOCCAL INFECTION [None]
